FAERS Safety Report 10637788 (Version 1)
Quarter: 2014Q4

REPORT INFORMATION
  Report Type: Spontaneous
  Country: US (occurrence: None)
  Receive Date: 20141121
  Receipt Date: 20141121
  Transmission Date: 20150529
  Serious: No
  Sender: FDA-Public Use
  Company Number: 163-10004-14072670

PATIENT
  Age: 57 Year
  Sex: Female
  Weight: 77.11 kg

DRUGS (8)
  1. METOPROLOL XL (METOPROLOL) [Concomitant]
     Active Substance: METOPROLOL
  2. PLAVIX (TABLETS) [Concomitant]
  3. OTEZLA [Suspect]
     Active Substance: APREMILAST
     Indication: PSORIASIS
     Dosage: STARTER PACK/TITRATED
     Route: 048
  4. OTEZLA [Suspect]
     Active Substance: APREMILAST
     Indication: PSORIATIC ARTHROPATHY
     Dosage: STARTER PACK/TITRATED
     Route: 048
  5. RAMIPRIL (RAMIPRIL) [Concomitant]
     Active Substance: RAMIPRIL
  6. ASPIRIN (ACETYLSALICYLIC ACID) [Concomitant]
     Active Substance: ASPIRIN
  7. METHOTREXATE (METHOTREXATE) [Concomitant]
     Active Substance: METHOTREXATE
  8. METFORMIN [Concomitant]
     Active Substance: METFORMIN HYDROCHLORIDE

REACTIONS (3)
  - Nausea [None]
  - Abdominal pain upper [None]
  - Headache [None]

NARRATIVE: CASE EVENT DATE: 201407
